FAERS Safety Report 24339691 (Version 1)
Quarter: 2024Q3

REPORT INFORMATION
  Report Type: Spontaneous
  Country: US (occurrence: None)
  Receive Date: 20240919
  Receipt Date: 20240919
  Transmission Date: 20241016
  Serious: Yes (Hospitalization)
  Sender: Public
  Company Number: None

PATIENT
  Age: 65 Year
  Sex: Female
  Weight: 67.27 kg

DRUGS (4)
  1. INGREZZA [Suspect]
     Active Substance: VALBENAZINE
     Indication: Tardive dyskinesia
     Dosage: FREQUENCY : DAILY;?
     Route: 048
     Dates: start: 20230109, end: 20240530
  2. Depakote 500mg TID [Concomitant]
  3. Clozapine 200mg QHS [Concomitant]
  4. Klonopin 0.5mg qam and 1mg qhs [Concomitant]

REACTIONS (5)
  - Cognitive disorder [None]
  - Fall [None]
  - Confusional state [None]
  - Dizziness [None]
  - Hypovolaemic shock [None]

NARRATIVE: CASE EVENT DATE: 20240530
